FAERS Safety Report 6850583-7 (Version None)
Quarter: 2010Q3

REPORT INFORMATION
  Report Type: 
  Country: None (occurrence: None)
  Receive Date: 20100716
  Receipt Date: 20080218
  Transmission Date: 20110219
  Serious: Yes (Other)
  Sender: FDA-Public Use
  Company Number: US-PFIZER INC-2007087342

PATIENT
  Sex: Female
  Weight: 77.1 kg

DRUGS (6)
  1. CHANTIX [Suspect]
     Indication: SMOKING CESSATION THERAPY
     Dates: start: 20061228, end: 20070301
  2. LAMICTAL [Interacting]
     Route: 048
  3. EFFEXOR XR [Interacting]
     Route: 048
  4. CLONAZEPAM [Interacting]
     Route: 048
  5. NEURONTIN [Concomitant]
  6. DRUG, UNSPECIFIED [Concomitant]

REACTIONS (5)
  - ABNORMAL DREAMS [None]
  - AGITATION [None]
  - DRUG INTERACTION [None]
  - MANIA [None]
  - SLEEP DISORDER [None]
